FAERS Safety Report 9414889 (Version 6)
Quarter: 2014Q1

REPORT INFORMATION
  Report Type: Spontaneous
  Country: US (occurrence: US)
  Receive Date: 20130723
  Receipt Date: 20140121
  Transmission Date: 20141002
  Serious: Yes (Other)
  Sender: FDA-Public Use
  Company Number: US-INCYTE CORPORATION-2013IN001564

PATIENT
  Age: 83 Year
  Sex: Female
  Weight: 68 kg

DRUGS (10)
  1. JAKAFI [Suspect]
     Indication: MYELOFIBROSIS
     Dosage: 10 MG (TWO 5 MG TABLETS), QAM AND 5 MG, QPM
     Route: 048
     Dates: start: 20130118, end: 20130701
  2. JAKAFI [Suspect]
     Dosage: 5 MG, BID
     Route: 048
     Dates: start: 20130702, end: 20130824
  3. ALLOPURINOL [Concomitant]
     Dosage: 100 MG, QD
     Route: 048
  4. ASPIRIN [Concomitant]
     Dosage: 81 MG, QD
     Route: 048
  5. CALCIUM + VITAMIN D [Concomitant]
     Dosage: 600 MG, QD
     Route: 048
  6. PLAVIX [Concomitant]
     Dosage: 75 MG, QD
     Route: 048
  7. SYNTHROID [Concomitant]
     Dosage: 75 MCG, QAM
     Route: 048
  8. METOPROLOL [Concomitant]
     Dosage: 25 MG, BID
     Route: 048
  9. ZOCOR [Concomitant]
     Dosage: 20 MG, QD
     Route: 048
  10. TYLENOL [Concomitant]
     Dosage: UNK

REACTIONS (9)
  - Syncope [Recovered/Resolved]
  - Presyncope [Recovered/Resolved]
  - Dehydration [Recovered/Resolved]
  - Hypoaesthesia [Unknown]
  - Paraesthesia [Unknown]
  - Low density lipoprotein increased [Unknown]
  - White blood cell count increased [Unknown]
  - Haemoglobin decreased [Unknown]
  - Platelet count decreased [Unknown]
